FAERS Safety Report 6659456-6 (Version None)
Quarter: 2010Q1

REPORT INFORMATION
  Report Type: 
  Country: None (occurrence: None)
  Receive Date: 20100330
  Receipt Date: 20100322
  Transmission Date: 20100710
  Serious: No
  Sender: FDA-Public Use
  Company Number: US-BIOGENIDEC-2010BI010140

PATIENT
  Age: 41 Year
  Sex: Female

DRUGS (3)
  1. TYSABRI [Suspect]
     Indication: MULTIPLE SCLEROSIS
     Route: 042
     Dates: start: 20041115, end: 20041215
  2. TYSABRI [Suspect]
     Route: 042
     Dates: start: 20080815, end: 20090107
  3. TYSABRI [Suspect]
     Route: 042
     Dates: start: 20100317

REACTIONS (1)
  - BLOOD PRESSURE INCREASED [None]
